FAERS Safety Report 8766493 (Version 2)
Quarter: 2012Q4

REPORT INFORMATION
  Report Type: 
  Country: US (occurrence: US)
  Receive Date: 20120904
  Receipt Date: 20120917
  Transmission Date: 20130627
  Serious: Yes (Death)
  Sender: FDA-Public Use
  Company Number: US-AMGEN-USASP2012055209

PATIENT
  Age: 64 Year
  Sex: Female
  Weight: 40.82 kg

DRUGS (2)
  1. NEULASTA [Suspect]
     Indication: CHEMOTHERAPY
     Dosage: 6 mg, after chemo
     Route: 058
     Dates: start: 20111128, end: 20120313
  2. ANTINEOPLASTIC AGENTS [Concomitant]
     Indication: LUNG NEOPLASM MALIGNANT

REACTIONS (1)
  - Lung neoplasm malignant [Fatal]
